FAERS Safety Report 9493353 (Version 1)
Quarter: 2013Q3

REPORT INFORMATION
  Report Type: Report from Study
  Country: MX (occurrence: MX)
  Receive Date: 20130902
  Receipt Date: 20130902
  Transmission Date: 20140515
  Serious: Yes (Other)
  Sender: FDA-Public Use
  Company Number: PHHY2013MX094940

PATIENT
  Age: 88 Year
  Sex: Female

DRUGS (1)
  1. CO-DIOVAN [Suspect]
     Indication: CARDIAC DISORDER
     Dosage: 1 DF,(80MG VALS, 12.5MG HCTZ)), DAILY
     Route: 048

REACTIONS (4)
  - Dengue fever [Unknown]
  - Pyrexia [Recovered/Resolved]
  - Malaise [Not Recovered/Not Resolved]
  - Headache [Recovering/Resolving]
